FAERS Safety Report 4638860-1 (Version None)
Quarter: 2005Q2

REPORT INFORMATION
  Report Type: 
  Country: None (occurrence: None)
  Receive Date: 20050419
  Receipt Date: 20050406
  Transmission Date: 20051028
  Serious: Yes (Hospitalization, Other)
  Sender: FDA-Public Use
  Company Number: FR-JNJFOC-20050201365

PATIENT
  Age: 60 Year
  Sex: Female
  Weight: 42 kg

DRUGS (6)
  1. REMICADE [Suspect]
     Dosage: 16 INFUSIONS AT DOSE OF 180MG
     Route: 042
  2. REMICADE [Suspect]
     Indication: RHEUMATOID ARTHRITIS
     Route: 042
  3. CELEBREX [Concomitant]
     Route: 049
  4. NOVATREX [Concomitant]
     Route: 049
  5. TOPALGIC [Concomitant]
     Route: 049
  6. ENBREL [Concomitant]

REACTIONS (4)
  - BLOOD PRESSURE INCREASED [None]
  - BREAST CANCER [None]
  - HOT FLUSH [None]
  - INFUSION RELATED REACTION [None]
